FAERS Safety Report 21713531 (Version 1)
Quarter: 2022Q4

REPORT INFORMATION
  Report Type: Spontaneous
  Country: IR (occurrence: IR)
  Receive Date: 20221212
  Receipt Date: 20221212
  Transmission Date: 20230113
  Serious: Yes (Hospitalization, Other)
  Sender: FDA-Public Use
  Company Number: IR-MLMSERVICE-20221206-3967103-1

PATIENT
  Age: 68 Year
  Sex: Female

DRUGS (7)
  1. AMLODIPINE [Suspect]
     Active Substance: AMLODIPINE BESYLATE
     Indication: Product used for unknown indication
  2. PRAZOSIN [Suspect]
     Active Substance: PRAZOSIN
     Indication: Product used for unknown indication
  3. TRIAMCINOLONE ACETONIDE [Suspect]
     Active Substance: TRIAMCINOLONE ACETONIDE
     Indication: Product used for unknown indication
  4. ASPIRIN [Suspect]
     Active Substance: ASPIRIN
     Indication: Product used for unknown indication
  5. MEFENAMIC ACID [Suspect]
     Active Substance: MEFENAMIC ACID
     Indication: Product used for unknown indication
  6. LANTUS [Concomitant]
     Active Substance: INSULIN GLARGINE
  7. ATORVASTATIN [Concomitant]
     Active Substance: ATORVASTATIN

REACTIONS (1)
  - Renal papillary necrosis [Recovered/Resolved]
